FAERS Safety Report 9789429 (Version 2)
Quarter: 2014Q1

REPORT INFORMATION
  Report Type: Spontaneous
  Country: TR (occurrence: TR)
  Receive Date: 20131231
  Receipt Date: 20140121
  Transmission Date: 20141002
  Serious: Yes (Life-Threatening)
  Sender: FDA-Public Use
  Company Number: TR-ROCHE-1327385

PATIENT
  Sex: Female
  Weight: 50 kg

DRUGS (3)
  1. XOLAIR [Suspect]
     Indication: ANAPHYLACTIC REACTION
     Route: 058
  2. XOLAIR [Suspect]
     Route: 058
     Dates: start: 20131226, end: 20131226
  3. ADVIL [Concomitant]

REACTIONS (2)
  - Anaphylactic shock [Recovered/Resolved]
  - Off label use [Unknown]
